FAERS Safety Report 10383055 (Version 1)
Quarter: 2014Q3

REPORT INFORMATION
  Report Type: Spontaneous
  Country: US (occurrence: US)
  Receive Date: 20140813
  Receipt Date: 20140813
  Transmission Date: 20150326
  Serious: No
  Sender: FDA-Public Use
  Company Number: US-SA-2014SA099899

PATIENT
  Age: 20 Year
  Sex: Female

DRUGS (4)
  1. TEGRETOL [Concomitant]
     Active Substance: CARBAMAZEPINE
     Indication: PARAESTHESIA
     Dosage: EVERY MORNING
     Dates: start: 20050616, end: 20120723
  2. NORTRIPTYLINE [Concomitant]
     Active Substance: NORTRIPTYLINE
     Indication: PARAESTHESIA
     Dates: start: 20120723, end: 20120730
  3. TEGRETOL [Concomitant]
     Active Substance: CARBAMAZEPINE
     Indication: PARAESTHESIA
     Dosage: EVERY EVENING
     Dates: start: 20050616, end: 20120723
  4. FABRAZYME [Suspect]
     Active Substance: AGALSIDASE BETA
     Indication: FABRY^S DISEASE
     Route: 042
     Dates: start: 20120426, end: 20120621

REACTIONS (1)
  - Exposure during pregnancy [Unknown]

NARRATIVE: CASE EVENT DATE: 2012
